FAERS Safety Report 21749693 (Version 2)
Quarter: 2022Q4

REPORT INFORMATION
  Report Type: Report from Study
  Country: US (occurrence: US)
  Receive Date: 20221219
  Receipt Date: 20221226
  Transmission Date: 20230112
  Serious: Yes (Hospitalization, Other)
  Sender: FDA-Public Use
  Company Number: US-ABBVIE-4241377

PATIENT
  Sex: Male

DRUGS (1)
  1. IMBRUVICA [Suspect]
     Active Substance: IBRUTINIB
     Indication: Chronic lymphocytic leukaemia
     Route: 048
     Dates: start: 202211

REACTIONS (6)
  - Blood potassium increased [Unknown]
  - Constipation [Unknown]
  - White blood cell count increased [Unknown]
  - Oxygen saturation decreased [Unknown]
  - Hypersomnia [Unknown]
  - Blindness [Unknown]
